FAERS Safety Report 6558408-4 (Version None)
Quarter: 2010Q1

REPORT INFORMATION
  Report Type: 
  Country: None (occurrence: None)
  Receive Date: 20100129
  Receipt Date: 20100120
  Transmission Date: 20100710
  Serious: Yes (Death, Life-Threatening, Hospitalization)
  Sender: FDA-Public Use
  Company Number: JP-JNJFOC-20090907972

PATIENT
  Sex: Male
  Weight: 76 kg

DRUGS (15)
  1. ITRIZOLE [Suspect]
     Indication: BRONCHOPULMONARY ASPERGILLOSIS
     Route: 041
  2. ITRIZOLE [Suspect]
     Route: 041
  3. ROXATIDINE ACETATE HCL [Concomitant]
     Route: 048
  4. BEZAFIBRATE [Concomitant]
     Indication: HYPERLIPIDAEMIA
     Route: 048
  5. AMBROXOL HYDROCHLORIDE [Concomitant]
     Indication: EMPHYSEMA
     Route: 048
  6. CARBOCISTEINE [Concomitant]
     Indication: EMPHYSEMA
     Route: 048
  7. NIFEDIPINE [Concomitant]
     Indication: HYPERTENSION
     Route: 048
  8. TRICHLORMETHIAZIDE [Concomitant]
     Indication: HYPERTENSION
     Route: 048
  9. DOXAZOSIN MESILATE [Concomitant]
     Indication: HYPERTENSION
     Route: 048
  10. GLIMEPIRIDE [Concomitant]
     Indication: DIABETES MELLITUS
     Route: 048
  11. TIOTROPIUM BROMIDE [Concomitant]
     Indication: CHRONIC RESPIRATORY FAILURE
     Route: 055
  12. TIOTROPIUM BROMIDE [Concomitant]
     Indication: EMPHYSEMA
     Route: 055
  13. SALMETEROL XINAFOATE [Concomitant]
     Indication: CHRONIC RESPIRATORY FAILURE
     Route: 055
  14. SALMETEROL XINAFOATE [Concomitant]
     Indication: EMPHYSEMA
     Route: 055
  15. LEVOFLOXACIN [Concomitant]
     Indication: PYREXIA
     Route: 048

REACTIONS (17)
  - BLOOD CREATININE INCREASED [None]
  - BLOOD POTASSIUM DECREASED [None]
  - BLOOD PRESSURE DIASTOLIC DECREASED [None]
  - BLOOD PRESSURE SYSTOLIC INCREASED [None]
  - BLOOD UREA INCREASED [None]
  - C-REACTIVE PROTEIN INCREASED [None]
  - CARDIAC FAILURE [None]
  - COUGH [None]
  - HAEMOPTYSIS [None]
  - HEADACHE [None]
  - MALAISE [None]
  - PULMONARY ALVEOLAR HAEMORRHAGE [None]
  - PYREXIA [None]
  - RESPIRATORY FAILURE [None]
  - RESPIRATORY TRACT HAEMORRHAGE [None]
  - SPUTUM INCREASED [None]
  - WHITE BLOOD CELL COUNT INCREASED [None]
